FAERS Safety Report 16219080 (Version 1)
Quarter: 2019Q2

REPORT INFORMATION
  Report Type: Spontaneous
  Country: GB (occurrence: GB)
  Receive Date: 20190419
  Receipt Date: 20190419
  Transmission Date: 20190711
  Serious: Yes (Life-Threatening, Hospitalization, Other)
  Sender: FDA-Public Use
  Company Number: GB-CANTON LABORATORIES, LLC-2066063

PATIENT
  Age: 58 Year
  Sex: Female

DRUGS (19)
  1. GENTAMICIN. [Suspect]
     Active Substance: GENTAMICIN
     Route: 042
     Dates: start: 20181110, end: 20181110
  2. CLOTRIMAZOLE. [Concomitant]
     Active Substance: CLOTRIMAZOLE
     Route: 061
  3. REPAGLINIDE. [Concomitant]
     Active Substance: REPAGLINIDE
     Route: 048
  4. OXYCODONE HYDROCHLORIDE. [Concomitant]
     Active Substance: OXYCODONE HYDROCHLORIDE
     Route: 048
  5. ADCAL-D3 (CACLIUM CARBONATE, COLECALCIFEROL) [Concomitant]
     Route: 048
  6. ALENDRONIC ACID [Concomitant]
     Active Substance: ALENDRONIC ACID
     Route: 048
  7. BETAMETHASONE 1% AND FUSIDIC ACID 2% [Concomitant]
     Route: 061
  8. ZOMORPH [Concomitant]
     Active Substance: MORPHINE SULFATE
     Route: 065
  9. ORLISTAT. [Concomitant]
     Active Substance: ORLISTAT
     Route: 048
  10. CO-CODAMOL (CODEINE PHOSPHATE 60 MG/PARACETAMOL 1 G) [Concomitant]
     Route: 048
  11. ALOGLIPTIN. [Concomitant]
     Active Substance: ALOGLIPTIN
     Route: 048
  12. LEVOTHYROXINE. [Concomitant]
     Active Substance: LEVOTHYROXINE
     Route: 048
  13. HYDROCORTISONE. [Concomitant]
     Active Substance: HYDROCORTISONE
     Route: 061
  14. SIMVASTATIN. [Concomitant]
     Active Substance: SIMVASTATIN
     Route: 048
  15. SERTRALINE [Concomitant]
     Active Substance: SERTRALINE HYDROCHLORIDE
     Route: 065
  16. GABAPENTIN. [Concomitant]
     Active Substance: GABAPENTIN
     Route: 048
  17. AMLODIPINE [Concomitant]
     Active Substance: AMLODIPINE BESYLATE
     Route: 048
  18. NAPROSYN [Suspect]
     Active Substance: NAPROXEN
     Indication: PRODUCT USED FOR UNKNOWN INDICATION
     Route: 048
     Dates: start: 20181110, end: 20181113
  19. METFORMIN HYDROCHLORIDE. [Suspect]
     Active Substance: METFORMIN HYDROCHLORIDE
     Route: 048
     Dates: start: 20181110, end: 20181113

REACTIONS (3)
  - Lactic acidosis [Recovered/Resolved]
  - Hyperkalaemia [Recovered/Resolved]
  - Acute kidney injury [Recovered/Resolved]

NARRATIVE: CASE EVENT DATE: 20181111
